FAERS Safety Report 8355510-1 (Version None)
Quarter: 2012Q2

REPORT INFORMATION
  Report Type: 
  Country: None (occurrence: None)
  Receive Date: 20120512
  Receipt Date: 20120423
  Transmission Date: 20120825
  Serious: Yes (Other)
  Sender: FDA-Public Use
  Company Number: PHHY2012KR008426

PATIENT
  Sex: Male
  Weight: 65 kg

DRUGS (3)
  1. INSULIN [Concomitant]
     Indication: DIABETES MELLITUS
  2. CYCLOSPORINE [Concomitant]
  3. EXJADE [Suspect]
     Indication: IRON OVERLOAD
     Route: 048
     Dates: start: 20100812

REACTIONS (1)
  - OSTEOPOROSIS [None]
